FAERS Safety Report 9139465 (Version 1)
Quarter: 2013Q1

REPORT INFORMATION
  Report Type: Spontaneous
  Country: US (occurrence: US)
  Receive Date: 20130305
  Receipt Date: 20130305
  Transmission Date: 20140127
  Serious: Yes (Other)
  Sender: FDA-Public Use
  Company Number: US-CELGENEUS-163-21880-13023555

PATIENT
  Sex: Male
  Weight: 105.78 kg

DRUGS (2)
  1. REVLIMID [Suspect]
     Indication: PLASMA CELL MYELOMA
     Dosage: 25 MILLIGRAM
     Route: 048
     Dates: start: 20130202
  2. OXYCONTIN [Suspect]
     Indication: PAIN
     Route: 065

REACTIONS (3)
  - Arrhythmia [Unknown]
  - Abdominal discomfort [Unknown]
  - Pain [Unknown]
